FAERS Safety Report 16182446 (Version 1)
Quarter: 2019Q2

REPORT INFORMATION
  Report Type: Spontaneous
  Country: DE (occurrence: DE)
  Receive Date: 20190410
  Receipt Date: 20190410
  Transmission Date: 20190711
  Serious: Yes (Disabling)
  Sender: FDA-Public Use
  Company Number: PHHY2019DE075775

PATIENT
  Sex: Male

DRUGS (4)
  1. VALSARTAN. [Suspect]
     Active Substance: VALSARTAN
     Indication: HYPERTENSION
     Dosage: UNK
     Route: 065
  2. VALSARTAN. [Suspect]
     Active Substance: VALSARTAN
     Dosage: UNK (1A PHARM)
     Route: 065
  3. VALSARTAN. [Suspect]
     Active Substance: VALSARTAN
     Dosage: UNK (DURA)
     Route: 065
  4. VALSARTAN. [Suspect]
     Active Substance: VALSARTAN
     Dosage: UNK (HEXAL)
     Route: 065

REACTIONS (10)
  - Arthropathy [Unknown]
  - Arrhythmia [Unknown]
  - Lyme disease [Unknown]
  - Musculoskeletal discomfort [Unknown]
  - Spinal disorder [Unknown]
  - Thyroid disorder [Unknown]
  - Psoriasis [Unknown]
  - Lymphoedema [Unknown]
  - Gait disturbance [Unknown]
  - Gout [Unknown]
